FAERS Safety Report 10494860 (Version 3)
Quarter: 2014Q4

REPORT INFORMATION
  Report Type: Spontaneous
  Country: US (occurrence: None)
  Receive Date: 20141001
  Receipt Date: 20141110
  Transmission Date: 20150528
  Serious: Yes (Hospitalization)
  Sender: FDA-Public Use
  Company Number: US-001286

PATIENT
  Sex: Male

DRUGS (2)
  1. SOLUTION FOR PARENTERAL NUTRITION [Concomitant]
  2. GATTEX [Suspect]
     Active Substance: TEDUGLUTIDE\WATER
     Indication: SHORT-BOWEL SYNDROME
     Dosage: DF SUBCUTANEOUS
     Route: 058

REACTIONS (6)
  - Blood potassium decreased [None]
  - Investigation [None]
  - Blood calcium decreased [None]
  - Asthenia [None]
  - Vomiting [None]
  - Electrolyte imbalance [None]

NARRATIVE: CASE EVENT DATE: 2014
